FAERS Safety Report 5334854-1 (Version None)
Quarter: 2007Q2

REPORT INFORMATION
  Report Type: 
  Country: None (occurrence: None)
  Receive Date: 20070525
  Receipt Date: 20070518
  Transmission Date: 20071010
  Serious: Yes (Other)
  Sender: FDA-Public Use
  Company Number: JP-MERCK-0705USA03921

PATIENT
  Sex: Female

DRUGS (2)
  1. FOSAMAX [Suspect]
     Indication: OSTEOPOROSIS
     Route: 048
     Dates: start: 20070301, end: 20070514
  2. LORCAM [Concomitant]
     Route: 048

REACTIONS (1)
  - HEPATIC FUNCTION ABNORMAL [None]
